FAERS Safety Report 12137945 (Version 2)
Quarter: 2016Q2

REPORT INFORMATION
  Report Type: Spontaneous
  Country: US (occurrence: US)
  Receive Date: 20160302
  Receipt Date: 20160513
  Transmission Date: 20160815
  Serious: No
  Sender: FDA-Public Use
  Company Number: US-009507513-1602USA006948

PATIENT
  Age: 27 Year
  Sex: Female

DRUGS (1)
  1. NEXPLANON [Suspect]
     Active Substance: ETONOGESTREL
     Indication: CONTRACEPTION
     Dosage: UNK
     Route: 059
     Dates: start: 20150122, end: 20160127

REACTIONS (3)
  - Device breakage [Recovered/Resolved]
  - Implant site pain [Recovered/Resolved]
  - Implant site pruritus [Recovered/Resolved]

NARRATIVE: CASE EVENT DATE: 20150122
